FAERS Safety Report 6083474-2 (Version None)
Quarter: 2009Q1

REPORT INFORMATION
  Report Type: 
  Country: None (occurrence: None)
  Receive Date: 20090219
  Receipt Date: 20090213
  Transmission Date: 20090719
  Serious: Yes (Other)
  Sender: FDA-Public Use
  Company Number: US-KINGPHARMUSA00001-K200900143

PATIENT
  Age: 62 Year
  Sex: Male

DRUGS (1)
  1. ALTACE [Suspect]
     Dosage: 2.5 MG, QD
     Route: 048
     Dates: start: 20080801

REACTIONS (2)
  - TENDON RUPTURE [None]
  - TENDONITIS [None]
